FAERS Safety Report 19560331 (Version 1)
Quarter: 2021Q3

REPORT INFORMATION
  Report Type: Spontaneous
  Country: US (occurrence: US)
  Receive Date: 20210715
  Receipt Date: 20210715
  Transmission Date: 20211014
  Serious: No
  Sender: FDA-Public Use
  Company Number: None

PATIENT
  Age: 54 Year
  Sex: Male

DRUGS (1)
  1. OTEZLA [Suspect]
     Active Substance: APREMILAST
     Indication: PSORIASIS
     Route: 048
     Dates: start: 20210224

REACTIONS (4)
  - Rash erythematous [None]
  - Rash papular [None]
  - Rash [None]
  - Symptom recurrence [None]

NARRATIVE: CASE EVENT DATE: 20210701
